FAERS Safety Report 4965988-9 (Version None)
Quarter: 2006Q2

REPORT INFORMATION
  Report Type: 
  Country: None (occurrence: None)
  Receive Date: 20060403
  Receipt Date: 20060317
  Transmission Date: 20061013
  Serious: Yes (Hospitalization)
  Sender: FDA-Public Use
  Company Number: 060314-0000270

PATIENT
  Age: 57 Year
  Sex: Female
  Weight: 70.3075 kg

DRUGS (24)
  1. PANHEMATIN [Suspect]
     Indication: PORPHYRIA ACUTE
     Dosage: 313 MG; QD; IV
     Route: 042
     Dates: start: 20051201, end: 20060101
  2. PANHEMATIN [Suspect]
     Indication: PORPHYRIA ACUTE
     Dosage: 313 MG; QD; IV
     Route: 042
     Dates: start: 20060131, end: 20060207
  3. MORPHINE [Concomitant]
  4. MS CONTIN [Concomitant]
  5. LORAZEPAM [Concomitant]
  6. .................... [Concomitant]
  7. ................... [Concomitant]
  8. ..................... [Concomitant]
  9. COLACE [Concomitant]
  10. DULCOLAX [Concomitant]
  11. SENOKOT [Concomitant]
  12. .............. [Concomitant]
  13. ................... [Concomitant]
  14. CELEXA [Concomitant]
  15. TIGAN [Concomitant]
  16. ANZEMET [Concomitant]
  17. PROMETHAZINE [Concomitant]
  18. ................... [Concomitant]
  19. TYLENOL (CAPLET) [Concomitant]
  20. MOTRIN [Concomitant]
  21. ADVAIR DISKUS 100/50 [Concomitant]
  22. ALBUTEROL [Concomitant]
  23. NEO-SYNEPHRINE [Concomitant]
  24. EXCEDRIN (MIGRAINE) [Concomitant]

REACTIONS (16)
  - ABDOMINAL DISTENSION [None]
  - ABDOMINAL PAIN UPPER [None]
  - ABDOMINAL TENDERNESS [None]
  - ARTHRALGIA [None]
  - ASTHMA [None]
  - BLOOD PRESSURE INCREASED [None]
  - CONDITION AGGRAVATED [None]
  - CONSTIPATION [None]
  - DYSPNOEA [None]
  - FATIGUE [None]
  - FEELING ABNORMAL [None]
  - HYPERGLYCAEMIA [None]
  - HYPOXIA [None]
  - MUSCULOSKELETAL PAIN [None]
  - NAUSEA [None]
  - SLEEP APNOEA SYNDROME [None]
